FAERS Safety Report 5330082-4 (Version None)
Quarter: 2007Q2

REPORT INFORMATION
  Report Type: 
  Country: None (occurrence: None)
  Receive Date: 20070521
  Receipt Date: 20070509
  Transmission Date: 20071010
  Serious: Yes (Hospitalization)
  Sender: FDA-Public Use
  Company Number: FR-ROCHE-495708

PATIENT
  Age: 76 Year
  Sex: Male

DRUGS (6)
  1. RIVOTRIL [Suspect]
     Indication: DRUG USE FOR UNKNOWN INDICATION
     Route: 048
     Dates: end: 20070119
  2. PLAVIX [Concomitant]
     Route: 048
  3. BUFLOMEDIL [Concomitant]
  4. TAREG [Concomitant]
     Route: 048
  5. MIXTARD HUMAN 70/30 [Concomitant]
  6. TRIATEC [Concomitant]
     Route: 048

REACTIONS (1)
  - GRAND MAL CONVULSION [None]
